FAERS Safety Report 24190730 (Version 1)
Quarter: 2024Q3

REPORT INFORMATION
  Report Type: Spontaneous
  Country: US (occurrence: None)
  Receive Date: 20240808
  Receipt Date: 20240808
  Transmission Date: 20241017
  Serious: Yes (Disabling)
  Sender: Public
  Company Number: None

PATIENT
  Age: 77 Year
  Sex: Female
  Weight: 90 kg

DRUGS (4)
  1. BOTOX [Suspect]
     Active Substance: ONABOTULINUMTOXINA
     Dosage: OTHER STRENGTH : DON^T KNOW;?OTHER QUANTITY : 1 INJECTION(S);?OTHER FREQUENCY : 1;?
     Route: 030
     Dates: start: 20240726, end: 20240726
  2. TYLENOL [Concomitant]
     Active Substance: ACETAMINOPHEN
  3. TRAMADOL [Concomitant]
     Active Substance: TRAMADOL\TRAMADOL HYDROCHLORIDE
  4. tykenol [Concomitant]

REACTIONS (3)
  - Muscle tightness [None]
  - Gait inability [None]
  - Headache [None]

NARRATIVE: CASE EVENT DATE: 20240726
